FAERS Safety Report 23602882 (Version 2)
Quarter: 2024Q1

REPORT INFORMATION
  Report Type: Spontaneous
  Country: RU (occurrence: RU)
  Receive Date: 20240306
  Receipt Date: 20240315
  Transmission Date: 20240410
  Serious: Yes (Death, Life-Threatening, Hospitalization)
  Sender: FDA-Public Use
  Company Number: RU-SANDOZ-SDZ2024RU023956

PATIENT
  Sex: Female
  Weight: 74 kg

DRUGS (7)
  1. METHOTREXATE [Suspect]
     Active Substance: METHOTREXATE
     Indication: Rheumatoid arthritis
     Dosage: 10 MG, QD HALF TAB ONCE A DAY
     Route: 048
     Dates: start: 20240215, end: 20240224
  2. BISOPROLOL [Concomitant]
     Active Substance: BISOPROLOL\BISOPROLOL FUMARATE
     Indication: Hypertension
     Dosage: UNK
     Route: 048
  3. FOLIC ACID [Concomitant]
     Active Substance: FOLIC ACID
     Indication: Chemotherapy side effect prophylaxis
     Dosage: UNK
     Route: 048
     Dates: start: 20240215, end: 20240224
  4. METFORMIN [Concomitant]
     Active Substance: METFORMIN HYDROCHLORIDE
     Indication: Type 2 diabetes mellitus
     Dosage: UNK
     Route: 048
  5. METHYLPREDNISOLONE [Concomitant]
     Active Substance: METHYLPREDNISOLONE
     Indication: Rheumatoid arthritis
     Dosage: UNK
     Route: 048
     Dates: start: 2008, end: 20240214
  6. METHYLPREDNISOLONE [Concomitant]
     Active Substance: METHYLPREDNISOLONE
     Route: 065
     Dates: start: 2008, end: 20240214
  7. VITAMIN D [Concomitant]
     Active Substance: VITAMIN D NOS
     Indication: Osteoporosis
     Dosage: UNK
     Route: 048

REACTIONS (4)
  - Agranulocytosis [Fatal]
  - Sepsis [Fatal]
  - Leukopenia [Fatal]
  - Clinical death [Fatal]

NARRATIVE: CASE EVENT DATE: 20240222
